FAERS Safety Report 5273929-2 (Version None)
Quarter: 2007Q1

REPORT INFORMATION
  Report Type: 
  Country: None (occurrence: None)
  Receive Date: 20070323
  Receipt Date: 20070315
  Transmission Date: 20070707
  Serious: Yes (Hospitalization)
  Sender: FDA-Public Use
  Company Number: 2007PK00672

PATIENT
  Age: 64 Year
  Sex: Male

DRUGS (17)
  1. ATACAND [Suspect]
     Indication: HYPERTENSION
     Route: 048
  2. BISOHEXAL [Interacting]
     Route: 048
  3. ESIDRIX [Suspect]
     Route: 048
  4. CYMBALTA [Interacting]
     Route: 048
     Dates: start: 20070105, end: 20070107
  5. CYMBALTA [Interacting]
     Route: 048
     Dates: start: 20070108, end: 20070110
  6. MIRTAZAPINE [Interacting]
     Route: 048
  7. NORVASC [Suspect]
     Route: 048
  8. LYRICA [Suspect]
     Route: 048
     Dates: start: 20061229, end: 20061230
  9. LYRICA [Suspect]
     Route: 048
     Dates: start: 20061231
  10. ASPIRIN [Concomitant]
     Indication: ANALGESIC EFFECT
     Route: 048
  11. PLAVIX [Concomitant]
     Indication: PLATELET AGGREGATION INHIBITION
     Route: 048
  12. SIMVAHEXAL [Concomitant]
     Indication: HYPERLIPIDAEMIA
     Route: 048
  13. MOLSIDOMIN [Concomitant]
     Route: 048
  14. PANTOZOL [Concomitant]
     Route: 048
  15. PENTAERYTHRITOL TETRANITRATE [Concomitant]
     Route: 048
  16. DECORTIN [Concomitant]
     Route: 048
  17. VIGANTOLETTEN [Concomitant]
     Indication: VITAMIN SUPPLEMENTATION
     Route: 048

REACTIONS (2)
  - CIRCULATORY COLLAPSE [None]
  - DRUG INTERACTION [None]
